FAERS Safety Report 8561158-6 (Version None)
Quarter: 2012Q3

REPORT INFORMATION
  Report Type: 
  Country: None (occurrence: None)
  Receive Date: 20120802
  Receipt Date: 20120723
  Transmission Date: 20120928
  Serious: Yes (Hospitalization, Other)
  Sender: FDA-Public Use
  Company Number: US-ACTELION-A-US2012-59191

PATIENT
  Age: 46 Year
  Sex: Female

DRUGS (8)
  1. TRACLEER [Suspect]
     Indication: PULMONARY ARTERIAL HYPERTENSION
     Dosage: UNK
     Route: 048
     Dates: start: 20040801
  2. FLOLAN [Concomitant]
  3. COUMADIN [Concomitant]
  4. FUROSEMIDE [Concomitant]
  5. OXYGEN [Concomitant]
  6. EPOPROSTENOL SODIUM [Suspect]
     Indication: PULMONARY ARTERIAL HYPERTENSION
     Dosage: 57 NG/KG, PER MIN
     Route: 042
     Dates: start: 20111117
  7. SPIRONOLACTONE [Concomitant]
  8. PREDNISONE [Concomitant]

REACTIONS (14)
  - DECREASED APPETITE [None]
  - ASTHENIA [None]
  - PYREXIA [None]
  - DYSGEUSIA [None]
  - CATHETER SITE PRURITUS [None]
  - VOMITING [None]
  - FUNGAL INFECTION [None]
  - MENORRHAGIA [None]
  - POLLAKIURIA [None]
  - CATHETER SITE ERYTHEMA [None]
  - EYELID OEDEMA [None]
  - WEIGHT DECREASED [None]
  - DRUG INTOLERANCE [None]
  - NAUSEA [None]
